FAERS Safety Report 19116939 (Version 2)
Quarter: 2021Q2

REPORT INFORMATION
  Report Type: Spontaneous
  Country: US (occurrence: US)
  Receive Date: 20210410
  Receipt Date: 20210414
  Transmission Date: 20210717
  Serious: Yes (Other)
  Sender: FDA-Public Use
  Company Number: US-DRREDDYS-USA/USA/21/0134029

PATIENT
  Age: 31 Year
  Sex: Female

DRUGS (9)
  1. ADALIMUMAB [Suspect]
     Active Substance: ADALIMUMAB
     Indication: CROHN^S DISEASE
  2. CERTOLIZUMAB PEGOL [Interacting]
     Active Substance: CERTOLIZUMAB PEGOL
     Indication: CROHN^S DISEASE
  3. PIMECROLIMUS. [Suspect]
     Active Substance: PIMECROLIMUS
     Indication: CROHN^S DISEASE
     Route: 061
  4. PREDNISONE. [Suspect]
     Active Substance: PREDNISONE
     Indication: CROHN^S DISEASE
     Route: 048
  5. CLOBETASOL [Suspect]
     Active Substance: CLOBETASOL
     Indication: CROHN^S DISEASE
     Route: 061
  6. INFLIXIMAB [Suspect]
     Active Substance: INFLIXIMAB
     Indication: CROHN^S DISEASE
  7. MERCAPTOPURINE. [Suspect]
     Active Substance: MERCAPTOPURINE
     Indication: CROHN^S DISEASE
  8. TRIAMCINOLONE [Suspect]
     Active Substance: TRIAMCINOLONE
     Indication: CROHN^S DISEASE
     Route: 026
  9. METRONIDAZOLE. [Suspect]
     Active Substance: METRONIDAZOLE
     Indication: CROHN^S DISEASE
     Route: 061

REACTIONS (2)
  - Drug ineffective [Unknown]
  - Crohn^s disease [Unknown]
